FAERS Safety Report 13521828 (Version 1)
Quarter: 2017Q2

REPORT INFORMATION
  Report Type: Spontaneous
  Country: US (occurrence: US)
  Receive Date: 20170508
  Receipt Date: 20170508
  Transmission Date: 20170830
  Serious: Yes (Other)
  Sender: FDA-Public Use
  Company Number: US-MALLINCKRODT-T201701813

PATIENT
  Sex: Male
  Weight: 10 kg

DRUGS (6)
  1. H.P. ACTHAR [Suspect]
     Active Substance: CORTICOTROPIN
     Dosage: 0.05ML ONCE DAILY FOR 3 DAYS
     Route: 030
     Dates: end: 20170420
  2. RANITIDINE. [Concomitant]
     Active Substance: RANITIDINE
  3. H.P. ACTHAR [Suspect]
     Active Substance: CORTICOTROPIN
     Dosage: 0.16ML ONCE DAILY FOR 3 DAYS
     Route: 030
  4. H.P. ACTHAR [Suspect]
     Active Substance: CORTICOTROPIN
     Dosage: 0.05 QOD FOR 6 DAYS
     Route: 030
     Dates: end: 20170425
  5. H.P. ACTHAR [Suspect]
     Active Substance: CORTICOTROPIN
     Indication: INFANTILE SPASMS
     Dosage: 0.4 ML, BID FOR 14 DAYS
     Route: 030
     Dates: start: 20170321
  6. H.P. ACTHAR [Suspect]
     Active Substance: CORTICOTROPIN
     Dosage: 0.08ML ONCE DAILY FOR 3 DAYS
     Route: 030

REACTIONS (7)
  - Swelling face [Unknown]
  - Drug withdrawal convulsions [Not Recovered/Not Resolved]
  - Agitation [Unknown]
  - Muscle spasms [Unknown]
  - Irritability [Unknown]
  - Eye swelling [Unknown]
  - Local swelling [Unknown]
